FAERS Safety Report 6951387-7 (Version None)
Quarter: 2010Q3

REPORT INFORMATION
  Report Type: 
  Country: None (occurrence: None)
  Receive Date: 20100828
  Receipt Date: 20100319
  Transmission Date: 20110219
  Serious: No
  Sender: FDA-Public Use
  Company Number: US-ABBOTT-10P-163-0634449-00

PATIENT
  Sex: Male
  Weight: 86.26 kg

DRUGS (4)
  1. NIASPAN [Suspect]
     Indication: BLOOD TRIGLYCERIDES INCREASED
  2. NIASPAN [Suspect]
  3. BENZAPRIL HCTZ [Concomitant]
     Indication: BLOOD PRESSURE
  4. EXALON [Concomitant]
     Indication: MEMORY IMPAIRMENT
     Route: 062

REACTIONS (2)
  - BACK PAIN [None]
  - DIARRHOEA [None]
